FAERS Safety Report 18606454 (Version 5)
Quarter: 2021Q2

REPORT INFORMATION
  Report Type: Other
  Country: CA (occurrence: CA)
  Receive Date: 20201211
  Receipt Date: 20210531
  Transmission Date: 20210717
  Serious: Yes (Other)
  Sender: FDA-Public Use
  Company Number: CA-TOLMAR, INC.-20CA024238

PATIENT
  Age: 72 Year
  Sex: Male

DRUGS (3)
  1. ELIGARD [Suspect]
     Active Substance: LEUPROLIDE ACETATE
     Dosage: 22.5 MG, Q 3 MONTH
     Route: 058
     Dates: start: 20210215
  2. ELIGARD [Suspect]
     Active Substance: LEUPROLIDE ACETATE
     Dosage: 22.5 MG, Q 3 MONTH
     Route: 058
     Dates: start: 20210512
  3. ELIGARD [Suspect]
     Active Substance: LEUPROLIDE ACETATE
     Indication: PROSTATE CANCER
     Dosage: 22.5 MG, Q 3 MONTH
     Route: 058
     Dates: start: 20201123

REACTIONS (8)
  - Irritability [Not Recovered/Not Resolved]
  - Dizziness [Unknown]
  - Night sweats [Not Recovered/Not Resolved]
  - Injection site pain [Recovered/Resolved]
  - Erectile dysfunction [Not Recovered/Not Resolved]
  - Hot flush [Not Recovered/Not Resolved]
  - Defaecation urgency [Unknown]
  - Weight increased [Unknown]

NARRATIVE: CASE EVENT DATE: 20201123
